FAERS Safety Report 15987355 (Version 5)
Quarter: 2019Q3

REPORT INFORMATION
  Report Type: Spontaneous
  Country: US (occurrence: US)
  Receive Date: 20190220
  Receipt Date: 20190731
  Transmission Date: 20191004
  Serious: Yes (Other)
  Sender: FDA-Public Use
  Company Number: US-PFIZER INC-2019076465

PATIENT
  Sex: Female
  Weight: 81.18 kg

DRUGS (16)
  1. OMEPRAZOLE. [Suspect]
     Active Substance: OMEPRAZOLE
     Indication: GASTROOESOPHAGEAL REFLUX DISEASE
     Dosage: 40 MG, DAILY
     Dates: start: 2017
  2. IBUPROFEN. [Concomitant]
     Active Substance: IBUPROFEN
     Indication: ARTHRALGIA
     Dosage: UNK
     Dates: start: 2009, end: 2013
  3. PEPCID COMPLETE [Concomitant]
     Active Substance: CALCIUM CARBONATE\FAMOTIDINE\MAGNESIUM HYDROXIDE
     Dosage: UNK
     Dates: start: 2012, end: 2019
  4. NEXIUM [Suspect]
     Active Substance: ESOMEPRAZOLE MAGNESIUM
     Indication: GASTROOESOPHAGEAL REFLUX DISEASE
     Dosage: 40 MG, DAILY
     Dates: start: 2010, end: 2011
  5. PANTOPRAZOLE [Suspect]
     Active Substance: PANTOPRAZOLE
     Indication: GASTROOESOPHAGEAL REFLUX DISEASE
     Dosage: 40 MG, DAILY
     Dates: start: 2011, end: 2013
  6. BENADRYL [Concomitant]
     Active Substance: DIPHENHYDRAMINE HYDROCHLORIDE
     Indication: HYPERSENSITIVITY
     Dosage: UNK
     Dates: start: 2009
  7. MELATONIN [Concomitant]
     Active Substance: MELATONIN
     Indication: SLEEP DISORDER
     Dosage: UNK
     Dates: start: 2018
  8. GAS FREE [Concomitant]
     Dosage: UNK
     Dates: start: 2012
  9. PEPCID AC [Concomitant]
     Active Substance: FAMOTIDINE
     Dosage: UNK
     Dates: start: 2012, end: 2019
  10. PROTONIX [Suspect]
     Active Substance: PANTOPRAZOLE SODIUM
     Dosage: UNK
     Dates: start: 2010, end: 2013
  11. PREVACID 24 HR [Suspect]
     Active Substance: LANSOPRAZOLE
     Indication: GASTROOESOPHAGEAL REFLUX DISEASE
     Dosage: 15 MG, DAILY
     Dates: start: 2009
  12. GAS FREE [Concomitant]
     Indication: FLATULENCE
     Dosage: UNK
     Dates: start: 2011
  13. PEPTO-BISMOL [Concomitant]
     Active Substance: BISMUTH SUBSALICYLATE
     Dosage: 30CC
  14. ZANTAC 75 [Concomitant]
     Active Substance: RANITIDINE HYDROCHLORIDE
     Dosage: UNK
     Dates: start: 2012, end: 2019
  15. IBUPROFEN. [Concomitant]
     Active Substance: IBUPROFEN
     Indication: BACK PAIN
  16. MYLANTA [Concomitant]
     Active Substance: ALUMINUM HYDROXIDE\DIMETHICONE\MAGNESIUM HYDROXIDE
     Dosage: UNK

REACTIONS (3)
  - Tubulointerstitial nephritis [Not Recovered/Not Resolved]
  - Chronic kidney disease [Not Recovered/Not Resolved]
  - Acute kidney injury [Unknown]

NARRATIVE: CASE EVENT DATE: 2012
